FAERS Safety Report 5890319-X (Version None)
Quarter: 2008Q3

REPORT INFORMATION
  Report Type: 
  Country: None (occurrence: None)
  Receive Date: 20080918
  Receipt Date: 20080904
  Transmission Date: 20090109
  Serious: Yes (Hospitalization)
  Sender: FDA-Public Use
  Company Number: 002#2#2008-00662

PATIENT
  Sex: Male

DRUGS (1)
  1. NEUPRO [Suspect]
     Indication: DRUG USE FOR UNKNOWN INDICATION
     Dosage: 4MG/24H,1 IN 1 D, TRANSDERMAL
     Route: 062
     Dates: start: 20071001

REACTIONS (1)
  - INTRACRANIAL ANEURYSM [None]
